FAERS Safety Report 7685771-3 (Version None)
Quarter: 2011Q3

REPORT INFORMATION
  Report Type: 
  Country: None (occurrence: None)
  Receive Date: 20110815
  Receipt Date: 20110815
  Transmission Date: 20111222
  Serious: Yes (Life-Threatening)
  Sender: FDA-Public Use
  Company Number: None

PATIENT
  Age: 50 Year
  Sex: Male
  Weight: 176.4 kg

DRUGS (1)
  1. ZOSYN [Suspect]
     Indication: RECTAL ABSCESS
     Dosage: 4.5 G
     Route: 040
     Dates: start: 20110803, end: 20110806

REACTIONS (6)
  - PULMONARY OEDEMA [None]
  - METABOLIC ACIDOSIS [None]
  - RENAL FAILURE ACUTE [None]
  - RESPIRATORY DISORDER [None]
  - TUBULOINTERSTITIAL NEPHRITIS [None]
  - RESPIRATORY ACIDOSIS [None]
